FAERS Safety Report 7557454-1 (Version None)
Quarter: 2011Q2

REPORT INFORMATION
  Report Type: 
  Country: None (occurrence: None)
  Receive Date: 20110620
  Receipt Date: 20110609
  Transmission Date: 20111010
  Serious: Yes (Hospitalization)
  Sender: FDA-Public Use
  Company Number: JP-ROCHE-626529

PATIENT
  Sex: Female
  Weight: 40 kg

DRUGS (24)
  1. TOCILIZUMAB [Suspect]
     Route: 041
     Dates: start: 20090819, end: 20091111
  2. PROGRAF [Concomitant]
     Route: 048
  3. ONEALFA [Concomitant]
     Dosage: FORM REPORTED: PERORAL AGENT
     Route: 048
  4. TOCILIZUMAB [Suspect]
     Route: 041
     Dates: start: 20090630, end: 20090630
  5. TOCILIZUMAB [Suspect]
     Route: 041
     Dates: start: 20090729, end: 20090729
  6. TOCILIZUMAB [Suspect]
     Route: 041
     Dates: start: 20100105, end: 20100310
  7. MUCOSTA [Concomitant]
     Dosage: FORM REPORTED: PERORAL AGENT.
     Route: 048
  8. TOCILIZUMAB [Suspect]
     Indication: RHEUMATOID ARTHRITIS
     Route: 041
     Dates: start: 20080806, end: 20080806
  9. PREDNISOLONE [Suspect]
     Route: 048
     Dates: start: 20080903, end: 20081028
  10. PREDNISOLONE [Suspect]
     Route: 048
     Dates: start: 20081029
  11. TOCILIZUMAB [Suspect]
     Route: 041
     Dates: start: 20081028, end: 20081028
  12. TOCILIZUMAB [Suspect]
     Route: 041
     Dates: start: 20081126, end: 20081126
  13. TOCILIZUMAB [Suspect]
     Route: 041
     Dates: start: 20090610, end: 20090610
  14. TOCILIZUMAB [Suspect]
     Route: 041
     Dates: start: 20100331, end: 20100512
  15. TOCILIZUMAB [Suspect]
     Route: 041
     Dates: start: 20100602, end: 20100714
  16. FOSAMAX [Concomitant]
     Dosage: DRUG REPORTED AS FOSAMAC 5 MG
     Route: 048
  17. VOLTAREN [Concomitant]
     Dosage: FORM REPORTED: PERORAL AGENT
     Route: 048
  18. TOCILIZUMAB [Suspect]
     Route: 041
     Dates: start: 20090204, end: 20090204
  19. TOCILIZUMAB [Suspect]
     Route: 041
     Dates: start: 20081217, end: 20081217
  20. TOCILIZUMAB [Suspect]
     Route: 041
     Dates: start: 20090114, end: 20090114
  21. PREDNISOLONE [Suspect]
     Indication: RHEUMATOID ARTHRITIS
     Route: 048
     Dates: end: 20080902
  22. LANSOPRAZOLE [Concomitant]
     Route: 048
  23. TOCILIZUMAB [Suspect]
     Route: 041
     Dates: start: 20080902, end: 20080902
  24. TOCILIZUMAB [Suspect]
     Route: 041
     Dates: start: 20090325, end: 20090325

REACTIONS (4)
  - JOINT ARTHROPLASTY [None]
  - JOINT DISLOCATION [None]
  - PNEUMOTHORAX [None]
  - PYOTHORAX [None]
